FAERS Safety Report 4691790-1 (Version None)
Quarter: 2005Q2

REPORT INFORMATION
  Report Type: 
  Country: None (occurrence: None)
  Receive Date: 20050615
  Receipt Date: 20050615
  Transmission Date: 20051028
  Serious: Yes (Other)
  Sender: FDA-Public Use
  Company Number: None

PATIENT
  Sex: Male
  Weight: 107.5 kg

DRUGS (2)
  1. CYTARABINE [Suspect]
     Dosage: 100MG/M2/DAY BY CIV ON DAYS 1-7
     Route: 042
     Dates: start: 20050503, end: 20050509
  2. DAUNORUBICIN 60 MG/M2/DAY BY IVP ON DAYS 1-3 [Suspect]
     Dosage: 60 MG/M2/DAY BY IVP ON DAYS 1-3
     Route: 042
     Dates: end: 20050505

REACTIONS (4)
  - ABDOMINAL PAIN [None]
  - DIARRHOEA [None]
  - DIVERTICULITIS [None]
  - PYREXIA [None]
